FAERS Safety Report 13726225 (Version 1)
Quarter: 2017Q3

REPORT INFORMATION
  Report Type: Spontaneous
  Country: US (occurrence: US)
  Receive Date: 20170707
  Receipt Date: 20170707
  Transmission Date: 20171127
  Serious: No
  Sender: FDA-Public Use
  Company Number: US-GLAXOSMITHKLINE-US2017GSK104552

PATIENT

DRUGS (3)
  1. NUCALA [Suspect]
     Active Substance: MEPOLIZUMAB
     Indication: ASTHMA
     Dosage: 100 MG, EVERY 28 DAYS
     Route: 058
     Dates: start: 201701
  2. PREDNISONE. [Suspect]
     Active Substance: PREDNISONE
     Dosage: 40 MG DAILY
     Route: 048
  3. PREDNISONE. [Suspect]
     Active Substance: PREDNISONE
     Indication: ASTHMA
     Dosage: 0 - 5 MG DAILY
     Route: 048

REACTIONS (3)
  - Pulmonary function test decreased [Unknown]
  - Forced expiratory volume decreased [Unknown]
  - Forced expiratory volume abnormal [Unknown]
